FAERS Safety Report 7440829-9 (Version None)
Quarter: 2011Q2

REPORT INFORMATION
  Report Type: 
  Country: None (occurrence: None)
  Receive Date: 20110427
  Receipt Date: 20110418
  Transmission Date: 20111010
  Serious: Yes (Hospitalization)
  Sender: FDA-Public Use
  Company Number: US-AMGEN-USASP2011012858

PATIENT
  Age: 83 Year
  Sex: Male

DRUGS (14)
  1. ADVAIR DISKUS 100/50 [Concomitant]
     Dosage: 2 MG, UNK
  2. AMLODIPINE [Concomitant]
     Dosage: 1 MG, UNK
  3. VITAMIN A [Concomitant]
     Dosage: 2 IU, UNK
  4. TRAZODONE [Concomitant]
     Dosage: 1 MG, UNK
  5. CITALOPRAM [Concomitant]
     Dosage: 1 MG, UNK
  6. TYLENOL (CAPLET) [Concomitant]
  7. PRILOSEC [Concomitant]
     Dosage: 1 MG, UNK
  8. LYRICA [Concomitant]
     Dosage: 1 MG, UNK
  9. MULTIVITAMIN                       /00097801/ [Concomitant]
  10. PREDNISONE [Concomitant]
     Dosage: 1 MG, UNK
  11. MAGNESIUM [Concomitant]
     Dosage: 1 MG, UNK
  12. STOOL SOFTENER [Concomitant]
     Dosage: 2 UNK, UNK
  13. PROLIA [Suspect]
     Indication: OSTEOPOROSIS
     Dosage: 60 MG, Q6MO
     Route: 058
     Dates: start: 20110223
  14. CALCIUM CITRATE W/VITAMIN D NOS [Concomitant]
     Dosage: UNK IU, UNK

REACTIONS (5)
  - MUSCLE SPASMS [None]
  - CONSTIPATION [None]
  - BACK PAIN [None]
  - MUSCULOSKELETAL STIFFNESS [None]
  - ABDOMINAL PAIN [None]
